FAERS Safety Report 9315279 (Version 1)
Quarter: 2013Q2

REPORT INFORMATION
  Report Type: Other
  Country: NO (occurrence: NO)
  Receive Date: 20130529
  Receipt Date: 20130529
  Transmission Date: 20140414
  Serious: Yes (Other)
  Sender: FDA-Public Use
  Company Number: NO-NICOBRDEVP-2013-02065

PATIENT
  Age: 75 Year
  Sex: Male
  Weight: 73 kg

DRUGS (16)
  1. DOCETAXEL (UNKNOWN) [Suspect]
     Indication: NON-SMALL CELL LUNG CANCER STAGE IV
     Dosage: 75 MG/M2, EVERY 3 WEEKS
     Route: 042
     Dates: start: 20121026
  2. LEVAXIN [Concomitant]
     Indication: HYPOTHYROIDISM
     Route: 065
  3. TRIATEC                            /00116401/ [Concomitant]
     Indication: HYPERTENSION
     Route: 065
  4. CALCIUM PANTOTHENATE [Concomitant]
     Indication: PROPHYLAXIS
     Route: 065
  5. SELO-ZOK [Concomitant]
     Indication: HYPERTENSION
     Route: 065
  6. MONOKET [Concomitant]
     Indication: HYPERTENSION
     Route: 065
  7. LIPITOR [Concomitant]
     Indication: PRODUCT USED FOR UNKNOWN INDICATION
     Route: 065
  8. FENTANYL [Concomitant]
     Indication: PAIN
     Route: 065
  9. KALEORID [Concomitant]
     Indication: PROPHYLAXIS
     Route: 065
  10. ALBYL-E [Concomitant]
     Indication: ANTICOAGULANT THERAPY
     Route: 065
  11. FURIX [Concomitant]
     Indication: POLYURIA
     Dosage: UNK
     Route: 065
     Dates: start: 20121103, end: 20121109
  12. SOBRIL [Concomitant]
     Indication: PRODUCT USED FOR UNKNOWN INDICATION
     Route: 065
  13. MIRTAZAPINE [Concomitant]
     Indication: DEPRESSION
     Route: 065
  14. PARACET                            /00020001/ [Concomitant]
     Indication: PAIN
     Route: 065
  15. FRAGMIN [Concomitant]
     Indication: PRODUCT USED FOR UNKNOWN INDICATION
     Route: 065
  16. DEXAMETHASONE [Concomitant]
     Indication: PREMEDICATION
     Dosage: 32 MG IN THE MORNING AND EVENING THE DAY BEFORE, SAME DAY AND THE DAY AFTER CHEMOTHERAPY
     Route: 065

REACTIONS (3)
  - Dehydration [Recovered/Resolved]
  - Neutrophil count decreased [Recovered/Resolved]
  - Urinary tract infection [Recovered/Resolved]
